FAERS Safety Report 6168545-4 (Version None)
Quarter: 2009Q2

REPORT INFORMATION
  Report Type: 
  Country: None (occurrence: None)
  Receive Date: 20090427
  Receipt Date: 20090416
  Transmission Date: 20091009
  Serious: Yes (Other)
  Sender: FDA-Public Use
  Company Number: GB-AMGEN-US343456

PATIENT
  Age: 29 Year
  Sex: Female
  Weight: 47.5 kg

DRUGS (2)
  1. ENBREL [Suspect]
     Indication: ANKYLOSING SPONDYLITIS
     Dosage: 50 MG (FREQUENCY UNSPECIFIED)
     Route: 058
     Dates: start: 20090309, end: 20090316
  2. NUROFEN [Concomitant]
     Indication: DYSMENORRHOEA
     Dosage: 2 DOSE FORMS (FREQUENCY UNKNOWN)
     Route: 048

REACTIONS (4)
  - CHEST PAIN [None]
  - DYSPNOEA [None]
  - HYPOAESTHESIA [None]
  - PARAESTHESIA [None]
